FAERS Safety Report 8110248-0 (Version None)
Quarter: 2012Q1

REPORT INFORMATION
  Report Type: 
  Country: None (occurrence: None)
  Receive Date: 20120202
  Receipt Date: 20120130
  Transmission Date: 20120608
  Serious: No
  Sender: FDA-Public Use
  Company Number: US-AMGEN-USASP2012004954

PATIENT
  Age: 45 Year
  Sex: Female

DRUGS (1)
  1. ENBREL [Suspect]
     Indication: RHEUMATOID ARTHRITIS
     Dosage: 50 MG, QWK
     Dates: start: 20120116

REACTIONS (12)
  - SENSATION OF HEAVINESS [None]
  - MUSCULOSKELETAL STIFFNESS [None]
  - DRY THROAT [None]
  - DRUG INEFFECTIVE [None]
  - ARTHRALGIA [None]
  - THROAT IRRITATION [None]
  - NECK PAIN [None]
  - INJECTION SITE ERYTHEMA [None]
  - HEADACHE [None]
  - FATIGUE [None]
  - INJECTION SITE PAIN [None]
  - INJECTION SITE PRURITUS [None]
